FAERS Safety Report 17555339 (Version 1)
Quarter: 2020Q1

REPORT INFORMATION
  Report Type: Spontaneous
  Country: US (occurrence: US)
  Receive Date: 20200318
  Receipt Date: 20200318
  Transmission Date: 20200409
  Serious: No
  Sender: FDA-Public Use
  Company Number: US-BRISTOL-MYERS SQUIBB COMPANY-BMS-2020-023287

PATIENT
  Age: 52 Year
  Sex: Female
  Weight: 119 kg

DRUGS (1)
  1. ELIQUIS [Suspect]
     Active Substance: APIXABAN
     Indication: CEREBROVASCULAR ACCIDENT PROPHYLAXIS
     Dosage: 5 MILLIGRAM, BID
     Route: 048
     Dates: start: 20200204

REACTIONS (3)
  - Intentional product use issue [Unknown]
  - Gingival bleeding [Unknown]
  - Toothache [Unknown]

NARRATIVE: CASE EVENT DATE: 20200204
